FAERS Safety Report 17314024 (Version 1)
Quarter: 2020Q1

REPORT INFORMATION
  Report Type: Spontaneous
  Country: US (occurrence: US)
  Receive Date: 20200108
  Receipt Date: 20200108
  Transmission Date: 20200409
  Serious: No
  Sender: FDA-Public Use
  Company Number: None

PATIENT
  Sex: Female

DRUGS (1)
  1. SOFOSBUVIR/VELPATASVIR 400/100MG [Suspect]
     Active Substance: SOFOSBUVIR\VELPATASVIR
     Indication: HEPATITIS VIRAL
     Dosage: ?          OTHER DOSE:400/100MG;?
     Route: 048
     Dates: start: 20191112

REACTIONS (3)
  - Abdominal pain upper [None]
  - Peripheral swelling [None]
  - Therapy cessation [None]
